FAERS Safety Report 12281572 (Version 1)
Quarter: 2016Q2

REPORT INFORMATION
  Report Type: Spontaneous
  Country: CH (occurrence: CH)
  Receive Date: 20160419
  Receipt Date: 20160419
  Transmission Date: 20160815
  Serious: Yes (Death)
  Sender: FDA-Public Use
  Company Number: CH-SA-2016SA075663

PATIENT
  Age: 81 Year
  Sex: Male

DRUGS (7)
  1. TAXOTERE [Suspect]
     Active Substance: DOCETAXEL
     Indication: PROSTATE CANCER METASTATIC
     Dosage: INFUSION AMPOULES, VIALS/BOTTLES
     Route: 041
     Dates: start: 20151013
  2. COVERSUM N [Concomitant]
     Active Substance: PERINDOPRIL
     Route: 048
  3. TRESIBA [Suspect]
     Active Substance: INSULIN DEGLUDEC
     Indication: PROSTATE CANCER METASTATIC
     Route: 058
     Dates: start: 2015
  4. LUCRIN [Suspect]
     Active Substance: LEUPROLIDE ACETATE
     Indication: PROSTATE CANCER METASTATIC
     Dosage: PRE FILLED SYRINGES
     Route: 058
     Dates: start: 20150309
  5. PREDNISONE. [Concomitant]
     Active Substance: PREDNISONE
     Route: 048
  6. ASPIRIN CARDIO [Concomitant]
     Active Substance: ASPIRIN
     Route: 048
  7. XGEVA [Suspect]
     Active Substance: DENOSUMAB
     Dosage: VIAL
     Route: 058
     Dates: start: 2015

REACTIONS (1)
  - Hepatitis fulminant [Fatal]

NARRATIVE: CASE EVENT DATE: 20160317
